FAERS Safety Report 9445251 (Version 5)
Quarter: 2014Q1

REPORT INFORMATION
  Report Type: Spontaneous
  Country: JP (occurrence: JP)
  Receive Date: 20130807
  Receipt Date: 20140214
  Transmission Date: 20141002
  Serious: Yes (Life-Threatening, Hospitalization)
  Sender: FDA-Public Use
  Company Number: JP-VIIV HEALTHCARE LIMITED-B0912935A

PATIENT
  Age: 0 Day
  Sex: Female
  Weight: .99 kg

DRUGS (11)
  1. COMBIVIR [Suspect]
     Indication: HIV INFECTION
     Dosage: 1IUAX TWICE PER DAY
     Route: 064
     Dates: start: 20121015
  2. ZIDOVUDINE [Suspect]
     Indication: PROPHYLAXIS AGAINST HIV INFECTION
     Route: 064
     Dates: start: 20130121, end: 20130121
  3. ZIDOVUDINE [Suspect]
     Indication: PRODUCT USED FOR UNKNOWN INDICATION
     Route: 048
  4. KALETRA [Suspect]
     Indication: HIV INFECTION
     Dosage: 1IUAX TWICE PER DAY
     Route: 064
     Dates: start: 20121015
  5. RINDERON [Suspect]
     Indication: NEONATAL RESPIRATORY DISTRESS SYNDROME PROPHYLAXIS
     Dosage: 12MG PER DAY
     Route: 064
     Dates: start: 20130102, end: 20130103
  6. UTEMERIN [Suspect]
     Indication: THREATENED LABOUR
     Dosage: 5MG THREE TIMES PER DAY
     Route: 064
     Dates: start: 20130102, end: 20130121
  7. APRESOLINE [Suspect]
     Indication: HYPERTENSION
     Route: 064
     Dates: start: 20130102, end: 20130121
  8. NEO-MINOPHAGEN-C [Suspect]
     Indication: HEPATIC FUNCTION ABNORMAL
     Dosage: 20ML PER DAY
     Route: 064
     Dates: start: 20130112, end: 20130120
  9. CEFAZOLIN SODIUM [Suspect]
     Indication: INFECTION PROPHYLAXIS
     Dosage: 1G TWICE PER DAY
     Route: 064
     Dates: start: 20130121, end: 20130122
  10. ATONIN O [Suspect]
     Indication: PRODUCT USED FOR UNKNOWN INDICATION
     Dosage: 5IU PER DAY
     Route: 064
     Dates: start: 20130121, end: 20130122
  11. LOXOPROFEN [Suspect]
     Indication: ANALGESIC THERAPY
     Dosage: 1IUAX THREE TIMES PER DAY
     Route: 064
     Dates: start: 20130121

REACTIONS (6)
  - Agranulocytosis [Recovered/Resolved]
  - Anaemia [Recovered/Resolved]
  - Granulocytopenia [Unknown]
  - Neutropenia [Unknown]
  - Low birth weight baby [Unknown]
  - Foetal exposure during pregnancy [Unknown]
